FAERS Safety Report 7981462-X (Version None)
Quarter: 2011Q4

REPORT INFORMATION
  Report Type: 
  Country: None (occurrence: None)
  Receive Date: 20111215
  Receipt Date: 20111206
  Transmission Date: 20120403
  Serious: Yes (Other)
  Sender: FDA-Public Use
  Company Number: US-ABBOTT-11P-163-0881174-00

PATIENT
  Sex: Female
  Weight: 62.198 kg

DRUGS (3)
  1. ATENOLOL [Concomitant]
     Indication: HYPERTENSION
  2. AMLODIPINE [Concomitant]
     Indication: HYPERTENSION
  3. HUMIRA [Suspect]
     Indication: PROSTATIC SPECIFIC ANTIGEN
     Route: 058
     Dates: start: 20060101, end: 20091101

REACTIONS (3)
  - PULMONARY MASS [None]
  - LUNG NEOPLASM MALIGNANT [None]
  - MUSCULOSKELETAL PAIN [None]
